FAERS Safety Report 5045260-1 (Version None)
Quarter: 2006Q3

REPORT INFORMATION
  Report Type: 
  Country: None (occurrence: None)
  Receive Date: 20060707
  Receipt Date: 20060628
  Transmission Date: 20061208
  Serious: Yes (Disabling)
  Sender: FDA-Public Use
  Company Number: FR-GILEAD-2006-0009823

PATIENT
  Age: 50 Year
  Sex: Female
  Weight: 45 kg

DRUGS (3)
  1. VIREAD [Suspect]
     Indication: HIV INFECTION
     Route: 048
     Dates: start: 20021008, end: 20060413
  2. EPIVIR [Concomitant]
  3. SUSTIVA [Concomitant]

REACTIONS (4)
  - DIABETES MELLITUS [None]
  - OSTEOMALACIA [None]
  - OSTEOPOROSIS [None]
  - RENAL TUBULAR DISORDER [None]
